FAERS Safety Report 7989267 (Version 2)
Quarter: 2014Q1

REPORT INFORMATION
  Report Type: Spontaneous
  Country: US (occurrence: US)
  Receive Date: 20110614
  Receipt Date: 20140110
  Transmission Date: 20141002
  Serious: Yes (Hospitalization, Other)
  Sender: FDA-Public Use
  Company Number: US-BAYER-2011-049583

PATIENT
  Age: 35 Year
  Sex: Female

DRUGS (5)
  1. YAZ [Suspect]
     Dosage: UNK
     Dates: start: 2007, end: 200909
  2. YASMIN [Suspect]
     Dosage: UNK
     Dates: start: 2007, end: 200909
  3. DILAUDID [Concomitant]
  4. ZOFRAN [Concomitant]
  5. LORTAB [Concomitant]

REACTIONS (17)
  - Cholecystitis [None]
  - Gallbladder disorder [None]
  - Cholecystitis acute [None]
  - Vomiting [None]
  - Chest pain [None]
  - Chills [None]
  - Tremor [None]
  - Pyrexia [None]
  - Dyspepsia [None]
  - Nausea [None]
  - Abdominal pain [None]
  - Injury [None]
  - Pain [None]
  - Amenorrhoea [None]
  - General physical health deterioration [None]
  - Anxiety [None]
  - Emotional distress [None]
